FAERS Safety Report 6131971-3 (Version None)
Quarter: 2009Q1

REPORT INFORMATION
  Report Type: 
  Country: None (occurrence: None)
  Receive Date: 20090325
  Receipt Date: 20090318
  Transmission Date: 20090719
  Serious: Yes (Other)
  Sender: FDA-Public Use
  Company Number: US-JNJCH-2009007491

PATIENT
  Age: 92 Year
  Sex: Male
  Weight: 74.4 kg

DRUGS (2)
  1. BENADRYL [Suspect]
     Indication: HYPERSENSITIVITY
     Dosage: TEXT:1 TABLET MORNING AND EVENING
     Route: 048
  2. GLIPIZIDE [Concomitant]
     Indication: DIABETES MELLITUS
     Dosage: TEXT:5 MG 4 A DAY
     Route: 048

REACTIONS (2)
  - HEART RATE DECREASED [None]
  - SOMNOLENCE [None]
